FAERS Safety Report 4672637-6 (Version None)
Quarter: 2005Q2

REPORT INFORMATION
  Report Type: 
  Country: None (occurrence: None)
  Receive Date: 20050524
  Receipt Date: 20050513
  Transmission Date: 20051028
  Serious: Yes (Other)
  Sender: FDA-Public Use
  Company Number: 200514121GDDC

PATIENT
  Age: 45 Year
  Sex: Female

DRUGS (5)
  1. NICODERM [Suspect]
     Dosage: 21MG PER DAY
     Route: 062
  2. NICODERM [Suspect]
     Dosage: 14MG PER DAY
     Route: 062
  3. NICODERM [Suspect]
     Dosage: 7MG PER DAY
     Route: 062
  4. LAMOTRIGINE [Concomitant]
     Indication: EPILEPSY
  5. CLONAZEPAM [Concomitant]

REACTIONS (7)
  - ABNORMAL DREAMS [None]
  - ANXIETY [None]
  - INSOMNIA [None]
  - INTENTIONAL MISUSE [None]
  - NIGHTMARE [None]
  - OVERDOSE [None]
  - PSYCHOTIC DISORDER [None]
